FAERS Safety Report 19751362 (Version 1)
Quarter: 2021Q3

REPORT INFORMATION
  Report Type: Spontaneous
  Country: FR (occurrence: FR)
  Receive Date: 20210827
  Receipt Date: 20210827
  Transmission Date: 20211014
  Serious: Yes (Life-Threatening)
  Sender: FDA-Public Use
  Company Number: FR-ORGANON-O2108FRA001927

PATIENT
  Age: 40 Year
  Sex: Female
  Weight: 135 kg

DRUGS (6)
  1. LEVOTHYROX [Concomitant]
     Active Substance: LEVOTHYROXINE
     Dosage: UNK
  2. VERAPAMIL HYDROCHLORIDE. [Concomitant]
     Active Substance: VERAPAMIL HYDROCHLORIDE
     Dosage: UNK
  3. DESLORATADINE. [Concomitant]
     Active Substance: DESLORATADINE
     Dosage: UNK
  4. MICROVAL [Suspect]
     Active Substance: LEVONORGESTREL
     Indication: CONTRACEPTION
     Dosage: 1 DOSAGE FORM, QD
     Route: 048
     Dates: start: 2015, end: 20210618
  5. CELESTENE (BETAMETHASONE) [Suspect]
     Active Substance: BETAMETHASONE
     Indication: PRODUCT USED FOR UNKNOWN INDICATION
     Dosage: UNK
     Dates: end: 20210618
  6. COMIRNATY [Suspect]
     Active Substance: TOZINAMERAN
     Indication: COVID-19 IMMUNISATION
     Dosage: COVID?19 MRNA VACCINE (MODIFIED NUCLEOSIDE), 1 DOSAGE FORM TOTAL, LEFT DELTOIDS
     Route: 030
     Dates: start: 20210507, end: 20210507

REACTIONS (1)
  - Cerebral venous thrombosis [Recovered/Resolved]

NARRATIVE: CASE EVENT DATE: 20210610
